FAERS Safety Report 6405158-0 (Version None)
Quarter: 2009Q4

REPORT INFORMATION
  Report Type: 
  Country: None (occurrence: None)
  Receive Date: 20091019
  Receipt Date: 20090914
  Transmission Date: 20100525
  Serious: No
  Sender: FDA-Public Use
  Company Number: US-BAYER-200932990NA

PATIENT
  Age: 34 Year
  Sex: Female

DRUGS (1)
  1. ULTRAVIST (PHARMACY BULK) [Suspect]
     Indication: COMPUTERISED TOMOGRAM ABDOMEN
     Dosage: 2.5 ML/SEC INTO THE RIGHT ARM, POWER INJECTOR AND WARMER
     Route: 042
     Dates: start: 20090911, end: 20090911

REACTIONS (2)
  - DYSPNOEA [None]
  - VOMITING [None]
